FAERS Safety Report 6061103-1 (Version None)
Quarter: 2009Q1

REPORT INFORMATION
  Report Type: 
  Country: None (occurrence: None)
  Receive Date: 20090202
  Receipt Date: 20090129
  Transmission Date: 20090719
  Serious: Yes (Hospitalization)
  Sender: FDA-Public Use
  Company Number: CA-EISAI MEDICAL RESEARCH-E2080-00096-CLI-CA

PATIENT
  Sex: Female
  Weight: 56.3 kg

DRUGS (7)
  1. E2080 [Suspect]
     Indication: EPILEPSY
     Route: 048
     Dates: start: 20081121, end: 20081201
  2. E2080 [Suspect]
     Route: 048
     Dates: start: 20081216, end: 20090117
  3. PRIMIDONE [Concomitant]
     Indication: EPILEPSY
     Dosage: 125MG - 2 TABS IN MORNING; 3 TABS AT NIGHT
     Route: 048
     Dates: start: 20080325
  4. CARBAMAZEPINE [Concomitant]
     Indication: EPILEPSY
     Dosage: 400MG - 2 TABS
     Route: 048
     Dates: start: 20081123
  5. ACETAMINOPHEN [Concomitant]
     Indication: HEADACHE
     Dosage: 500MG
     Route: 048
     Dates: start: 20080601
  6. IBUPROFEN [Concomitant]
     Indication: PAIN IN JAW
     Dosage: 200MG
     Route: 048
     Dates: start: 20080501
  7. NAPROXEN [Concomitant]
     Indication: HEADACHE
     Dosage: 375MG
     Route: 048
     Dates: start: 20081114

REACTIONS (1)
  - SUICIDAL IDEATION [None]
